FAERS Safety Report 9654865 (Version 1)
Quarter: 2013Q4

REPORT INFORMATION
  Report Type: Spontaneous
  Country: US (occurrence: US)
  Receive Date: 20131029
  Receipt Date: 20131029
  Transmission Date: 20140711
  Serious: No
  Sender: FDA-Public Use
  Company Number: US-BAXTER-2013BAX009165

PATIENT
  Sex: Female

DRUGS (1)
  1. SUPRANE (DESFLURANE, USP) [Suspect]
     Indication: ACCIDENTAL EXPOSURE TO PRODUCT
     Route: 065

REACTIONS (3)
  - Accidental exposure to product [Unknown]
  - Erythema [Unknown]
  - Pruritus [Unknown]
